FAERS Safety Report 7594901-3 (Version None)
Quarter: 2011Q2

REPORT INFORMATION
  Report Type: 
  Country: None (occurrence: None)
  Receive Date: 20110615
  Receipt Date: 20100716
  Transmission Date: 20111010
  Serious: Yes (Hospitalization)
  Sender: FDA-Public Use
  Company Number: WAES 1007USA01889

PATIENT
  Age: 83 Year
  Sex: Female

DRUGS (7)
  1. ARICEPT [Suspect]
     Indication: DEMENTIA ALZHEIMER'S TYPE
     Dates: end: 20100501
  2. LEVOTHYROXINE SODIUM [Concomitant]
  3. LANTUS [Concomitant]
  4. NAMENDA [Suspect]
     Indication: DEMENTIA ALZHEIMER'S TYPE
     Dosage: 10 MG/DAILY/PO
     Route: 048
     Dates: start: 20070101, end: 20100501
  5. WELCHOL [Suspect]
     Indication: BLOOD CHOLESTEROL INCREASED
     Dates: end: 20100501
  6. JANUVIA [Concomitant]
  7. COZAAR [Suspect]
     Indication: HYPERTENSION
     Dosage: PO
     Route: 048
     Dates: end: 20100501

REACTIONS (1)
  - SYNCOPE [None]
